FAERS Safety Report 15082965 (Version 1)
Quarter: 2018Q2

REPORT INFORMATION
  Report Type: Spontaneous
  Country: FR (occurrence: FR)
  Receive Date: 20180628
  Receipt Date: 20180628
  Transmission Date: 20180711
  Serious: Yes (Other)
  Sender: FDA-Public Use
  Company Number: FR-BAYER-2018-112378

PATIENT
  Sex: Female

DRUGS (1)
  1. JAYDESS [Suspect]
     Active Substance: LEVONORGESTREL
     Dosage: 14 MCG/24HR, CONT
     Route: 015
     Dates: start: 20151015, end: 20180601

REACTIONS (4)
  - Pelvic pain [None]
  - Abdominal distension [Recovering/Resolving]
  - Abdominal rigidity [None]
  - Abdominal distension [None]

NARRATIVE: CASE EVENT DATE: 20170601
